FAERS Safety Report 4264866-0 (Version None)
Quarter: 2004Q1

REPORT INFORMATION
  Report Type: 
  Country: None (occurrence: None)
  Receive Date: 20040105
  Receipt Date: 20031223
  Transmission Date: 20041129
  Serious: Yes (Other)
  Sender: FDA-Public Use
  Company Number: HQWYE882923DEC03

PATIENT
  Sex: Female

DRUGS (5)
  1. EMCOR (BISOPROLOL, TABLET) [Suspect]
     Dosage: 10 MG 1X PER 1 DAY
     Route: 048
  2. ASPIRIN [Concomitant]
  3. LANSOPRAZOLE [Concomitant]
  4. RAMIPRIL [Concomitant]
  5. LIPITOR [Concomitant]

REACTIONS (1)
  - ANAPHYLACTIC REACTION [None]
